FAERS Safety Report 6567049-4 (Version None)
Quarter: 2010Q1

REPORT INFORMATION
  Report Type: 
  Country: None (occurrence: None)
  Receive Date: 20100127
  Receipt Date: 20100112
  Transmission Date: 20100710
  Serious: Yes (Hospitalization)
  Sender: FDA-Public Use
  Company Number: B0626905A

PATIENT
  Age: 30 Year
  Sex: Female

DRUGS (2)
  1. TRANYLCYPROMINE SULFATE [Suspect]
     Indication: SLEEP DISORDER
  2. CHLORPROMAZINE HCL [Concomitant]

REACTIONS (13)
  - ACTIVATED PARTIAL THROMBOPLASTIN TIME PROLONGED [None]
  - AGITATION [None]
  - ASPARTATE AMINOTRANSFERASE INCREASED [None]
  - CONFUSIONAL STATE [None]
  - CONTUSION [None]
  - DRUG DEPENDENCE [None]
  - INAPPROPRIATE AFFECT [None]
  - IRRITABILITY [None]
  - LIVER INJURY [None]
  - PARANOIA [None]
  - TACHYCARDIA [None]
  - THROMBOCYTOPENIA [None]
  - TREMOR [None]
